FAERS Safety Report 7544026-8 (Version None)
Quarter: 2011Q2

REPORT INFORMATION
  Report Type: 
  Country: None (occurrence: None)
  Receive Date: 20110613
  Receipt Date: 20050307
  Transmission Date: 20111010
  Serious: Yes (Hospitalization, Other)
  Sender: FDA-Public Use
  Company Number: PHFR2004GB04373

PATIENT
  Sex: Male

DRUGS (1)
  1. CLOZAPINE [Suspect]
     Indication: SCHIZOPHRENIA
     Dosage: 400 MG, QD
     Route: 048
     Dates: start: 19951206, end: 20050225

REACTIONS (11)
  - METASTASES TO LUNG [None]
  - METASTASES TO BONE [None]
  - LUNG DISORDER [None]
  - MALAISE [None]
  - HAEMOGLOBIN DECREASED [None]
  - ARTHRALGIA [None]
  - METASTASES TO BLADDER [None]
  - MULTIPLE MYELOMA [None]
  - KIDNEY ENLARGEMENT [None]
  - GASTROINTESTINAL CARCINOMA [None]
  - HEPATOMEGALY [None]
